FAERS Safety Report 9840968 (Version 1)
Quarter: 2014Q1

REPORT INFORMATION
  Report Type: Report from Study
  Country: HU (occurrence: HU)
  Receive Date: 20140124
  Receipt Date: 20140124
  Transmission Date: 20141002
  Serious: Yes (Hospitalization)
  Sender: FDA-Public Use
  Company Number: HU-UCBSA-109517

PATIENT
  Age: 35 Year
  Sex: Male
  Weight: 80 kg

DRUGS (1)
  1. CERTOLIZUMAB PEGOL [Suspect]
     Indication: CROHN^S DISEASE
     Dosage: 400 MG; NO OF DOSES RECEIVED: 1
     Route: 058
     Dates: start: 20131217, end: 20131217

REACTIONS (1)
  - Anal abscess [Recovered/Resolved]
